FAERS Safety Report 7085481-X (Version None)
Quarter: 2010Q4

REPORT INFORMATION
  Report Type: 
  Country: None (occurrence: None)
  Receive Date: 20101105
  Receipt Date: 20101101
  Transmission Date: 20110411
  Serious: Yes (Other)
  Sender: FDA-Public Use
  Company Number: US-PFIZER INC-2010128996

PATIENT
  Sex: Female
  Weight: 84 kg

DRUGS (14)
  1. CHANTIX [Suspect]
     Indication: SMOKING CESSATION THERAPY
     Dosage: 0.5 MG, 1X/DAY
     Route: 048
     Dates: start: 20100901, end: 20100901
  2. CHANTIX [Suspect]
     Dosage: 0.5 MG, 2X/DAY
     Dates: start: 20100915
  3. LASIX [Concomitant]
  4. HUMALOG [Concomitant]
  5. LANTUS [Concomitant]
     Dosage: 10 UNK, UNK
  6. ACTOS [Concomitant]
  7. NIASPAN [Concomitant]
  8. VYTORIN [Concomitant]
     Dosage: UNK
  9. ALDACTONE [Concomitant]
  10. LISINOPRIL [Concomitant]
  11. K-DUR [Concomitant]
  12. PANCRELIPASE [Concomitant]
     Dosage: UNIT DOSE: 1; FREQUENCY: 4X/DAILY,
  13. DIGOXIN [Concomitant]
     Route: 048
  14. PLAVIX [Concomitant]

REACTIONS (3)
  - CHOKING [None]
  - DEPRESSED MOOD [None]
  - PHARYNGEAL OEDEMA [None]
